FAERS Safety Report 15917040 (Version 1)
Quarter: 2019Q1

REPORT INFORMATION
  Report Type: Spontaneous
  Country: US (occurrence: US)
  Receive Date: 20190205
  Receipt Date: 20190205
  Transmission Date: 20190417
  Serious: Yes (Hospitalization)
  Sender: FDA-Public Use
  Company Number: None

PATIENT
  Age: 57 Year
  Sex: Female

DRUGS (22)
  1. PROZAC [Concomitant]
     Active Substance: FLUOXETINE HYDROCHLORIDE
  2. ESTRADIOL. [Concomitant]
     Active Substance: ESTRADIOL
  3. DULOXETINE. [Concomitant]
     Active Substance: DULOXETINE
  4. FENTANYL. [Concomitant]
     Active Substance: FENTANYL
  5. GLATIRAMER [Suspect]
     Active Substance: GLATIRAMER
     Indication: MULTIPLE SCLEROSIS
     Dosage: ?          OTHER FREQUENCY:THREE TIMES WEEKLY;?
     Route: 058
     Dates: start: 20180913
  6. ASMANEX [Concomitant]
     Active Substance: MOMETASONE FUROATE
  7. CALCIUM CITR [Concomitant]
  8. BENTYL [Concomitant]
     Active Substance: DICYCLOMINE HYDROCHLORIDE
  9. BUPROPION. [Concomitant]
     Active Substance: BUPROPION
  10. VITAMIN D [Concomitant]
     Active Substance: CHOLECALCIFEROL
  11. WELLBUTRIN [Concomitant]
     Active Substance: BUPROPION HYDROCHLORIDE
  12. HYDROCHLOROT [Concomitant]
     Active Substance: HYDROCHLOROTHIAZIDE
  13. VITAMIN D3 [Concomitant]
     Active Substance: CHOLECALCIFEROL
  14. PROAIR HFA [Concomitant]
     Active Substance: ALBUTEROL SULFATE
  15. VIBERZI [Concomitant]
     Active Substance: ELUXADOLINE
  16. KEPPRA [Concomitant]
     Active Substance: LEVETIRACETAM
  17. VITAMIN B12 [Concomitant]
     Active Substance: CYANOCOBALAMIN
  18. FOLIC ACID. [Concomitant]
     Active Substance: FOLIC ACID
  19. BACLOFEN. [Concomitant]
     Active Substance: BACLOFEN
  20. LINZESS [Concomitant]
     Active Substance: LINACLOTIDE
  21. MAG OXIDE [Concomitant]
     Active Substance: MAGNESIUM OXIDE
  22. TRAZODONE [Concomitant]
     Active Substance: TRAZODONE HYDROCHLORIDE

REACTIONS (2)
  - Therapy cessation [None]
  - Surgery [None]
